FAERS Safety Report 9925058 (Version 1)
Quarter: 2014Q1

REPORT INFORMATION
  Report Type: Spontaneous
  Country: US (occurrence: None)
  Receive Date: 20140225
  Receipt Date: 20140225
  Transmission Date: 20141002
  Serious: Yes (Other)
  Sender: FDA-Public Use
  Company Number: None

PATIENT
  Age: 59 Year
  Sex: Male
  Weight: 92.99 kg

DRUGS (1)
  1. NPH HUMAN INSULIN [Suspect]
     Indication: DIABETES MELLITUS
     Route: 030
     Dates: start: 20140218, end: 20140224

REACTIONS (1)
  - Product quality issue [None]
